FAERS Safety Report 19264477 (Version 1)
Quarter: 2021Q2

REPORT INFORMATION
  Report Type: Spontaneous
  Country: US (occurrence: US)
  Receive Date: 20210515
  Receipt Date: 20210515
  Transmission Date: 20210717
  Serious: Yes (Hospitalization)
  Sender: FDA-Public Use
  Company Number: None

PATIENT
  Age: 74 Year
  Sex: Male
  Weight: 83 kg

DRUGS (2)
  1. CARBOPLATIN. [Suspect]
     Active Substance: CARBOPLATIN
     Dates: end: 20210428
  2. ETOPOSIDE (VP?16) [Suspect]
     Active Substance: ETOPOSIDE
     Dates: end: 20210430

REACTIONS (9)
  - Gastrooesophageal reflux disease [None]
  - Odynophagia [None]
  - Vomiting [None]
  - Hypophagia [None]
  - Hypokalaemia [None]
  - Nausea [None]
  - Neutropenia [None]
  - Dehydration [None]
  - Anaemia [None]

NARRATIVE: CASE EVENT DATE: 20210508
